FAERS Safety Report 14845408 (Version 1)
Quarter: 2018Q2

REPORT INFORMATION
  Report Type: Spontaneous
  Country: US (occurrence: US)
  Receive Date: 20180504
  Receipt Date: 20180504
  Transmission Date: 20180711
  Serious: No
  Sender: FDA-Public Use
  Company Number: US-ROCHE-2114985

PATIENT
  Sex: Female
  Weight: 47.22 kg

DRUGS (2)
  1. OCREVUS [Suspect]
     Active Substance: OCRELIZUMAB
     Indication: SECONDARY PROGRESSIVE MULTIPLE SCLEROSIS
  2. OCREVUS [Suspect]
     Active Substance: OCRELIZUMAB
     Indication: RELAPSING-REMITTING MULTIPLE SCLEROSIS
     Dosage: WILL HAVE NEXT OCREVUS INFUSION ON JUN-2018 ;ONGOING: YES
     Route: 065
     Dates: start: 201801

REACTIONS (4)
  - Vocal cord dysfunction [Not Recovered/Not Resolved]
  - Aphonia [Not Recovered/Not Resolved]
  - Infection susceptibility increased [Unknown]
  - Cystitis [Unknown]
